FAERS Safety Report 25072768 (Version 1)
Quarter: 2025Q1

REPORT INFORMATION
  Report Type: Report from Study
  Country: US (occurrence: US)
  Receive Date: 20250313
  Receipt Date: 20250313
  Transmission Date: 20250409
  Serious: Yes (Other)
  Sender: ABBVIE
  Company Number: US-ABBVIE-6172304

PATIENT
  Sex: Female

DRUGS (1)
  1. CREON [Suspect]
     Active Substance: PANCRELIPASE AMYLASE\PANCRELIPASE LIPASE\PANCRELIPASE PROTEASE
     Indication: Pancreatic disorder
     Route: 048

REACTIONS (12)
  - Triple negative breast cancer [Unknown]
  - Off label use [Unknown]
  - Bile acid malabsorption [Unknown]
  - Duodenitis [Unknown]
  - Gastritis [Unknown]
  - Irritable bowel syndrome [Unknown]
  - Weight decreased [Recovering/Resolving]
  - Malnutrition [Unknown]
  - Alopecia [Recovering/Resolving]
  - Diarrhoea [Not Recovered/Not Resolved]
  - Flatulence [Unknown]
  - Tooth disorder [Unknown]

NARRATIVE: CASE EVENT DATE: 20240101
